FAERS Safety Report 6378085-5 (Version None)
Quarter: 2009Q3

REPORT INFORMATION
  Report Type: 
  Country: None (occurrence: None)
  Receive Date: 20090925
  Receipt Date: 20090911
  Transmission Date: 20100115
  Serious: Yes (Hospitalization, Other)
  Sender: FDA-Public Use
  Company Number: DE-GENENTECH-290572

PATIENT
  Sex: Male

DRUGS (4)
  1. LUCENTIS [Suspect]
     Indication: MACULAR DEGENERATION
     Dosage: 0.5 MG, UNKNOWN
     Route: 031
     Dates: start: 20090708
  2. LUCENTIS [Suspect]
     Dosage: 0.5 MG, UNKNOWN
     Route: 031
     Dates: start: 20090806
  3. LUCENTIS [Suspect]
     Dosage: 0.5 MG, UNKNOWN
     Route: 031
     Dates: start: 20090907
  4. FALITHROM [Concomitant]
     Indication: DRUG USE FOR UNKNOWN INDICATION

REACTIONS (2)
  - CEREBROVASCULAR ACCIDENT [None]
  - EMBOLISM [None]
